FAERS Safety Report 8867061 (Version 1)
Quarter: 2012Q4

REPORT INFORMATION
  Report Type: 
  Country: US (occurrence: US)
  Receive Date: 20121025
  Receipt Date: 20121025
  Transmission Date: 20130627
  Serious: No
  Sender: FDA-Public Use
  Company Number: US-AMGEN-USASP2012014501

PATIENT
  Age: 42 Year
  Sex: Female

DRUGS (3)
  1. ENBREL [Suspect]
     Indication: PRODUCT USED FOR UNKNOWN INDICATION
     Dosage: 50 mg, 2 times/wk
     Route: 058
  2. SYNTHROID [Concomitant]
     Dosage: 125 mug, UNK
  3. CONTRACEPTIVES [Concomitant]
     Dosage: UNK

REACTIONS (1)
  - Nasopharyngitis [Unknown]
